FAERS Safety Report 8906000 (Version 1)
Quarter: 2012Q4

REPORT INFORMATION
  Report Type: 
  Country: US (occurrence: US)
  Receive Date: 20121113
  Receipt Date: 20121113
  Transmission Date: 20130627
  Serious: Yes (Other)
  Sender: FDA-Public Use
  Company Number: US-PFIZER INC-2012283666

PATIENT
  Sex: Female

DRUGS (2)
  1. EFFEXOR XR [Suspect]
     Indication: ENERGY DECREASED
     Dosage: 37.5 mg, UNK
     Route: 048
  2. EFFEXOR [Suspect]
     Indication: ENERGY DECREASED
     Dosage: UNK

REACTIONS (5)
  - Cauda equina syndrome [Unknown]
  - Hernia [Unknown]
  - Pollakiuria [Unknown]
  - Musculoskeletal pain [Unknown]
  - Off label use [Unknown]
